FAERS Safety Report 8583974 (Version 6)
Quarter: 2013Q4

REPORT INFORMATION
  Report Type: Report from Study
  Country: JP (occurrence: JP)
  Receive Date: 20120529
  Receipt Date: 20131028
  Transmission Date: 20140711
  Serious: Yes (Hospitalization)
  Sender: FDA-Public Use
  Company Number: JP-ROCHE-1071380

PATIENT
  Age: 14 Year
  Sex: Female
  Weight: 48 kg

DRUGS (6)
  1. OMALIZUMAB [Suspect]
     Indication: ASTHMA
     Route: 058
     Dates: start: 20110511
  2. OMALIZUMAB [Suspect]
     Route: 058
     Dates: start: 20120203, end: 20120813
  3. THEO-DUR [Concomitant]
     Route: 065
     Dates: start: 20101015
  4. SALMETEROL XINAFOATE [Concomitant]
     Route: 065
     Dates: start: 20101115
  5. FLUTICASONE PROPIONATE [Concomitant]
     Route: 065
     Dates: start: 20101115
  6. TRANSAMIN [Concomitant]
     Route: 065
     Dates: start: 20120509, end: 20120514

REACTIONS (2)
  - Peritonsillar abscess [Recovered/Resolved]
  - Lymphadenitis [Recovered/Resolved]
